FAERS Safety Report 25979002 (Version 1)
Quarter: 2025Q4

REPORT INFORMATION
  Report Type: Spontaneous
  Country: GB (occurrence: GB)
  Receive Date: 20251030
  Receipt Date: 20251030
  Transmission Date: 20260118
  Serious: Yes (Hospitalization, Other)
  Sender: MICRO LABS LIMITED
  Company Number: None

PATIENT
  Age: 84 Year
  Sex: Male

DRUGS (16)
  1. METFORMIN [Suspect]
     Active Substance: METFORMIN HYDROCHLORIDE
     Indication: Product used for unknown indication
  2. ENOXAPARIN [Concomitant]
     Active Substance: ENOXAPARIN
     Indication: Product used for unknown indication
     Dosage: ENOXAPARIN SODIUM 80 MG / 0.8 ML SOLUTION FOR INJECTION PRE-FILLED SYRINGES 80 MG TWICE A DAY AT 9 A
  3. CHOLECALCIFEROL [Concomitant]
     Active Substance: CHOLECALCIFEROL
     Indication: Product used for unknown indication
     Dosage: COLECALCIFEROL 800 UNIT CAPSULES ONE TO BE TAKEN EACH MORNING
  4. Senna 7.5 mg tablets [Concomitant]
     Indication: Product used for unknown indication
     Dosage: SENNA 7.5 MG TABLETS TWO TO BE TAKEN AT NIGHT WHEN RERQUIRED FOR CONSTIPATION
  5. SIMVASTATIN [Concomitant]
     Active Substance: SIMVASTATIN
     Indication: Product used for unknown indication
     Dosage: SIMVASTATIN 20 MG TABLETS ONE TO BE TAKEN AT NIGHT
  6. NICORANDIL [Concomitant]
     Active Substance: NICORANDIL
     Indication: Product used for unknown indication
     Dosage: NICORANDIL 20 MG TABLETS ONE TO BE TAKEN TWICE A DAY - REDUCE TO 10MG BD WITH AIM TO STOP (GIVEN CHR
  7. BISOPROLOL [Concomitant]
     Active Substance: BISOPROLOL
     Indication: Product used for unknown indication
     Dosage: BISOPROLOL 5 MG TABLETS ONE TO BE TAKEN EACH DAY
  8. RANOLAZINE [Concomitant]
     Active Substance: RANOLAZINE
     Indication: Product used for unknown indication
     Dosage: RANOLAZINE 375 MG MODIFIED-RELEASE TABLETS ONE TO BE TAKEN TWICE A DAY
  9. MIRTAZAPINE [Concomitant]
     Active Substance: MIRTAZAPINE
     Indication: Product used for unknown indication
     Dosage: MIRTAZAPINE 15 MG TABLETS ONE TO BE TAKEN AT NIGHT
  10. FAMOTIDINE [Concomitant]
     Active Substance: FAMOTIDINE
     Indication: Product used for unknown indication
     Dosage: FAMOTIDINE 20 MG TABLETS ONE TO BE TAKEN IN THE MORNING
  11. DOXAZOSIN [Concomitant]
     Active Substance: DOXAZOSIN MESYLATE
     Indication: Product used for unknown indication
     Dosage: DOXAZOSIN 2 MG TABLETS ONE TO BE TAKEN EACH DAY
  12. DOCUSATE [Concomitant]
     Active Substance: DOCUSATE
     Indication: Product used for unknown indication
     Dosage: DOCUSATE 100 MG CAPSULES ONE OR TWO TO BE TAKEN IN THE MORNING AND AT NIGHT WHEN REQUIRED FOR CONSTI
  13. ISOSORBIDE MONONITRATE [Concomitant]
     Active Substance: ISOSORBIDE MONONITRATE
     Indication: Product used for unknown indication
     Dosage: MONOMIL XL 60 MG TABLETS ONE TO BE TAKEN EACH MORNING
  14. Cavilon Durable barrier cream [Concomitant]
     Indication: Product used for unknown indication
     Dosage: CAVILON DURABLE BARRIER CREAM APPLY TO THE AFFECTED AREAS WHEN REQUIRED AUTHORISED (NOT YET ISSUED?)
  15. POLYETHYLENE GLYCOLS [Concomitant]
     Active Substance: POLYETHYLENE GLYCOLS
     Indication: Product used for unknown indication
     Dosage: MACROGOL COMPOUND ORAL POWDER SACHETS NPF SUGAR FREE ONE SACHET TO BE TAKEN TWICE A DAY WHEN REQUIRE
  16. ACETAMINOPHEN [Concomitant]
     Active Substance: ACETAMINOPHEN
     Indication: Product used for unknown indication
     Dosage: PARACETAMOL 500 MG TABLETS ONE OR TWO TO BE TAKEN FOUR TIMES A DAY WHEN REQUIRED FOR PAIN

REACTIONS (2)
  - Kidney infection [Unknown]
  - Lactic acidosis [Unknown]
